FAERS Safety Report 22649259 (Version 1)
Quarter: 2023Q2

REPORT INFORMATION
  Report Type: Spontaneous
  Country: US (occurrence: None)
  Receive Date: 20230626
  Receipt Date: 20230626
  Transmission Date: 20230721
  Serious: Yes (Death)
  Sender: FDA-Public Use
  Company Number: None

PATIENT
  Age: 81 Year
  Sex: Female

DRUGS (16)
  1. RINVOQ [Suspect]
     Active Substance: UPADACITINIB
     Indication: Rheumatoid arthritis
     Dosage: FREQUENCY : DAILY;?
     Route: 048
  2. BENZONATATE [Concomitant]
     Active Substance: BENZONATATE
  3. DOCUSATE SOD [Concomitant]
  4. DONEPEZIL [Concomitant]
     Active Substance: DONEPEZIL
  5. GABAPENTIN [Concomitant]
  6. METFORMIN [Concomitant]
  7. MIDODRINE [Concomitant]
  8. MIRTAZAPINE [Concomitant]
  9. MYRBETRIQ [Concomitant]
     Active Substance: MIRABEGRON
  10. OXYBUTYNIN [Concomitant]
  11. PANTOPRAZOLE [Concomitant]
     Active Substance: PANTOPRAZOLE
  12. SOTALOL [Concomitant]
  13. TRAMADOL [Concomitant]
  14. TYLENOL [Concomitant]
  15. FERROUS SULFATE [Concomitant]
     Active Substance: FERROUS SULFATE
  16. LORAZEPAM [Concomitant]
     Active Substance: LORAZEPAM

REACTIONS (1)
  - Death [None]

NARRATIVE: CASE EVENT DATE: 20230621
